FAERS Safety Report 5144075-3 (Version None)
Quarter: 2006Q4

REPORT INFORMATION
  Report Type: 
  Country: None (occurrence: None)
  Receive Date: 20061106
  Receipt Date: 20061016
  Transmission Date: 20070319
  Serious: Yes (Other)
  Sender: FDA-Public Use
  Company Number: J200604319

PATIENT
  Age: 56 Year
  Sex: Male

DRUGS (4)
  1. SAWACILLIN [Suspect]
     Indication: OTITIS MEDIA ACUTE
     Dosage: 1UNIT THREE TIMES PER DAY
     Route: 048
     Dates: start: 20061010
  2. KELNAC [Concomitant]
     Indication: OTITIS MEDIA ACUTE
     Dosage: 1UNIT THREE TIMES PER DAY
     Route: 048
     Dates: start: 20061010
  3. MERISLON [Concomitant]
     Indication: OTITIS MEDIA
     Dosage: 3TAB PER DAY
  4. BETAMETHASONE [Concomitant]
     Indication: OTITIS MEDIA

REACTIONS (3)
  - BLOOD PRESSURE INCREASED [None]
  - DIZZINESS [None]
  - MALAISE [None]
